APPROVED DRUG PRODUCT: PHENTERMINE HYDROCHLORIDE
Active Ingredient: PHENTERMINE HYDROCHLORIDE
Strength: 30MG
Dosage Form/Route: CAPSULE;ORAL
Application: A202858 | Product #002
Applicant: INVAGEN PHARMACEUTICALS INC
Approved: Feb 14, 2014 | RLD: No | RS: No | Type: DISCN